FAERS Safety Report 7223364-2 (Version None)
Quarter: 2011Q1

REPORT INFORMATION
  Report Type: 
  Country: None (occurrence: None)
  Receive Date: 20110112
  Receipt Date: 20100514
  Transmission Date: 20110831
  Serious: No
  Sender: FDA-Public Use
  Company Number: US-ALLERGAN-1006394US

PATIENT
  Age: 84 Year
  Sex: Female

DRUGS (9)
  1. VITAMIN E [Concomitant]
  2. AMLODIPINE BESYLATE [Concomitant]
  3. MULTI-VITAMIN [Concomitant]
  4. OMEPRAZOLE [Concomitant]
  5. RESTASIS [Suspect]
     Indication: DRY EYE
     Dosage: UNK
     Route: 047
  6. SYNTHROID [Concomitant]
  7. LEVOXYL [Concomitant]
  8. SIMVASTATIN [Concomitant]
  9. CHLORDIAZEPOXIDE [Concomitant]

REACTIONS (6)
  - LACRIMATION INCREASED [None]
  - VISION BLURRED [None]
  - OCULAR HYPERAEMIA [None]
  - SKIN BURNING SENSATION [None]
  - HEADACHE [None]
  - DRY SKIN [None]
